FAERS Safety Report 4848556-9 (Version None)
Quarter: 2005Q4

REPORT INFORMATION
  Report Type: 
  Country: None (occurrence: None)
  Receive Date: 20051206
  Receipt Date: 20051122
  Transmission Date: 20060501
  Serious: Yes (Life-Threatening)
  Sender: FDA-Public Use
  Company Number: 108222ISR

PATIENT
  Age: 88 Year
  Sex: Female

DRUGS (12)
  1. CITALOPRAM HYDROBROMIDE [Suspect]
     Indication: ANXIETY
     Dosage: 60 MILLIGRAM
     Dates: start: 20040124, end: 20051027
  2. CLOZAPINE [Suspect]
     Indication: PSYCHOTIC DISORDER
  3. ASPIRIN TAB [Concomitant]
  4. CHLORTHALIDONE [Concomitant]
  5. ENALAPRIL [Concomitant]
  6. NITRAZEPAM [Concomitant]
  7. PARACETAMOL [Concomitant]
  8. DILTIAZEM HYDROCHLORIDE [Concomitant]
  9. IPRATROPIUM BROMIDE [Concomitant]
  10. GLYCERYL TRINITRATE [Concomitant]
  11. DOMPERIDONE [Concomitant]
  12. PSYLLIUM [Concomitant]

REACTIONS (5)
  - ANAEMIA [None]
  - FAECES DISCOLOURED [None]
  - INFLAMMATION [None]
  - LEUKOCYTOSIS [None]
  - SEROTONIN SYNDROME [None]
